FAERS Safety Report 6616509-6 (Version None)
Quarter: 2010Q1

REPORT INFORMATION
  Report Type: 
  Country: None (occurrence: None)
  Receive Date: 20100305
  Receipt Date: 20100223
  Transmission Date: 20100710
  Serious: Yes (Hospitalization)
  Sender: FDA-Public Use
  Company Number: DE-PFIZER INC-2010023012

PATIENT
  Age: 57 Year
  Sex: Male

DRUGS (2)
  1. LYRICA [Suspect]
     Dosage: UNK
     Route: 048
     Dates: start: 20090124, end: 20090209
  2. MOCLOBEMIDE [Concomitant]
     Dosage: UNK
     Route: 048
     Dates: start: 20090124

REACTIONS (2)
  - DERMATITIS ALLERGIC [None]
  - RASH [None]
